FAERS Safety Report 12600703 (Version 2)
Quarter: 2017Q1

REPORT INFORMATION
  Report Type: Spontaneous
  Country: CA (occurrence: CA)
  Receive Date: 20160727
  Receipt Date: 20170301
  Transmission Date: 20170428
  Serious: No
  Sender: FDA-Public Use
  Company Number: CA-FRI-1000086484

PATIENT
  Age: 44 Year
  Sex: Female
  Weight: 61.6 kg

DRUGS (3)
  1. VALTREX [Concomitant]
     Active Substance: VALACYCLOVIR HYDROCHLORIDE
     Indication: PRODUCT USED FOR UNKNOWN INDICATION
     Dosage: 1000 MG, PRN
     Route: 065
  2. ESCITALOPRAM OXALATE - BP [Suspect]
     Active Substance: ESCITALOPRAM OXALATE
     Indication: FATIGUE
     Dosage: 10 MG, QD
     Route: 048
     Dates: start: 20130319
  3. TRAZODONE [Concomitant]
     Active Substance: TRAZODONE HYDROCHLORIDE
     Indication: PRODUCT USED FOR UNKNOWN INDICATION
     Dosage: 25 MG, QHS
     Route: 065

REACTIONS (2)
  - Heart rate irregular [Unknown]
  - Off label use [Unknown]

NARRATIVE: CASE EVENT DATE: 20130319
